FAERS Safety Report 8555630-2 (Version None)
Quarter: 2012Q3

REPORT INFORMATION
  Report Type: 
  Country: None (occurrence: None)
  Receive Date: 20120731
  Receipt Date: 20120717
  Transmission Date: 20120928
  Serious: Yes (Death, Other)
  Sender: FDA-Public Use
  Company Number: AU-ELI_LILLY_AND_COMPANY-AU201207004815

PATIENT
  Age: 30 Year
  Sex: Male

DRUGS (2)
  1. ZYPREXA [Suspect]
     Dosage: 10 MG, UNKNOWN
  2. TEMAZEPAM [Concomitant]
     Dosage: 1 DF, UNKNOWN

REACTIONS (2)
  - DEATH [None]
  - INTENTIONAL OVERDOSE [None]
